FAERS Safety Report 24301871 (Version 1)
Quarter: 2024Q3

REPORT INFORMATION
  Report Type: Spontaneous
  Country: JP (occurrence: JP)
  Receive Date: 20240910
  Receipt Date: 20240910
  Transmission Date: 20241016
  Serious: Yes (Life-Threatening, Hospitalization, Other)
  Sender: JUBILANT
  Company Number: None

PATIENT
  Age: 42 Year
  Sex: Female

DRUGS (7)
  1. OLANZAPINE [Suspect]
     Active Substance: OLANZAPINE
     Indication: Depression
     Dosage: 50 MG, TOTAL (20 TABLETS OF 2.5 MG EACH)
     Route: 048
  2. NITRAZEPAM [Suspect]
     Active Substance: NITRAZEPAM
     Indication: Depression
     Dosage: 600 MG, TOTAL (120 TABLETS OF 5 MG EACH)
     Route: 048
  3. NITRAZEPAM [Suspect]
     Active Substance: NITRAZEPAM
     Dosage: 10 MG, UNK (5 MG, TWO TABLETS)
  4. VALPROIC ACID [Suspect]
     Active Substance: VALPROIC ACID
     Indication: Depression
     Dosage: 35600 MG, TOTAL (178 TABLETS OF 200 MG EACH)
     Route: 048
  5. VALPROIC ACID [Suspect]
     Active Substance: VALPROIC ACID
     Dosage: 200 MG, ONE TABLET.
  6. CHLORPROMAZINE HYDROCHLORIDE [Concomitant]
     Active Substance: CHLORPROMAZINE HYDROCHLORIDE
     Indication: Depression
     Dosage: 100 MG (50MG, TWO TABLETS)
     Route: 065
  7. FLUNITRAZEPAM [Concomitant]
     Active Substance: FLUNITRAZEPAM
     Indication: Depression
     Dosage: 2 MG (5 MG, TWO TABLETS)
     Route: 065

REACTIONS (13)
  - Hypernatraemia [Unknown]
  - Respiratory acidosis [Recovered/Resolved]
  - Unresponsive to stimuli [Recovered/Resolved]
  - Altered state of consciousness [Recovered/Resolved]
  - Hypoxia [Recovered/Resolved]
  - Overdose [Recovered/Resolved]
  - Hypotension [Recovered/Resolved]
  - Blood lactic acid increased [Recovered/Resolved]
  - Cardiogenic shock [Recovered/Resolved]
  - Pneumonia aspiration [Unknown]
  - Somnolence [Recovered/Resolved]
  - Diabetes insipidus [Recovered/Resolved]
  - Toxicity to various agents [Recovered/Resolved]
